FAERS Safety Report 7447105-9 (Version None)
Quarter: 2011Q2

REPORT INFORMATION
  Report Type: 
  Country: None (occurrence: None)
  Receive Date: 20110429
  Receipt Date: 20110418
  Transmission Date: 20111010
  Serious: Yes (Death, Other)
  Sender: FDA-Public Use
  Company Number: US-ELI_LILLY_AND_COMPANY-US201103005086

PATIENT
  Sex: Female
  Weight: 53.968 kg

DRUGS (13)
  1. CITALOPRAM [Concomitant]
  2. VIT D [Concomitant]
  3. VITAMIN B-12 [Concomitant]
  4. FENTANYL [Concomitant]
  5. CLONAZEPAM [Concomitant]
  6. ENBREL [Concomitant]
  7. FORTEO [Suspect]
     Indication: OSTEOPOROSIS
     Dosage: 20 UG, QD
     Route: 058
     Dates: start: 20101216, end: 20110207
  8. MOBIC [Concomitant]
  9. ASPIRIN [Concomitant]
  10. AMLODIPINE [Concomitant]
  11. DILAUDID [Concomitant]
  12. PLAVIX [Concomitant]
  13. CALCIUM [Concomitant]

REACTIONS (4)
  - CEREBROVASCULAR ACCIDENT [None]
  - FAT EMBOLISM [None]
  - HAEMORRHAGE INTRACRANIAL [None]
  - HAEMORRHAGIC STROKE [None]
